FAERS Safety Report 8477658-3 (Version None)
Quarter: 2012Q2

REPORT INFORMATION
  Report Type: 
  Country: None (occurrence: None)
  Receive Date: 20120626
  Receipt Date: 20120626
  Transmission Date: 20120825
  Serious: Yes (Life-Threatening)
  Sender: FDA-Public Use
  Company Number: None

PATIENT
  Age: 76 Year
  Sex: Female
  Weight: 51.2565 kg

DRUGS (1)
  1. DELSYM [Suspect]
     Indication: COUGH
     Dosage: 10 ML TWICE DAILY
     Dates: start: 20120619, end: 20120621

REACTIONS (6)
  - PRODUCT CONTAMINATION PHYSICAL [None]
  - NAUSEA [None]
  - VOMITING [None]
  - MALAISE [None]
  - DIARRHOEA [None]
  - FOOD POISONING [None]
